FAERS Safety Report 5915354-4 (Version None)
Quarter: 2008Q4

REPORT INFORMATION
  Report Type: 
  Country: None (occurrence: None)
  Receive Date: 20081010
  Receipt Date: 20081006
  Transmission Date: 20090506
  Serious: Yes (Other)
  Sender: FDA-Public Use
  Company Number: IT-ROCHE-590073

PATIENT

DRUGS (1)
  1. CEFTRIAXONE [Suspect]
     Indication: ANTIBIOTIC THERAPY
     Route: 065

REACTIONS (1)
  - STATUS EPILEPTICUS [None]
